FAERS Safety Report 8509873-4 (Version None)
Quarter: 2012Q3

REPORT INFORMATION
  Report Type: 
  Country: None (occurrence: None)
  Receive Date: 20120713
  Receipt Date: 20120703
  Transmission Date: 20120928
  Serious: Yes (Hospitalization)
  Sender: FDA-Public Use
  Company Number: FR-BRISTOL-MYERS SQUIBB COMPANY-16749756

PATIENT
  Age: 59 Year
  Sex: Female

DRUGS (4)
  1. SITAGLIPTIN PHOSPHATE/METFORMIN HYDROCHLORIDE [Suspect]
     Indication: TYPE 2 DIABETES MELLITUS
     Dosage: FILM COATED TABLET 1DF=50/1000MG
     Route: 048
     Dates: start: 20120305, end: 20120427
  2. OLMESARTAN MEDOXOMIL [Suspect]
     Dosage: 1 DF: 40/25 MG AUG11 TO 09MAY2012(9MONTHS) RESTARTED:14MAY2012
     Route: 048
     Dates: start: 20110801
  3. GLUCOPHAGE [Suspect]
     Indication: TYPE 2 DIABETES MELLITUS
     Dosage: FILM COATED TABLET UNK TO 9MAY2012 RESTARTED:14MAY2012
     Route: 048
  4. FLUVASTATIN SODIUM [Suspect]
     Dosage: FRACTAL LP PROLONGED RELEASE TABLET UNK-09MAY2012 RESTARTED:16MAY12
     Route: 048

REACTIONS (5)
  - RENAL FAILURE ACUTE [None]
  - DRUG RASH WITH EOSINOPHILIA AND SYSTEMIC SYMPTOMS [None]
  - RASH MACULO-PAPULAR [None]
  - FACE OEDEMA [None]
  - EOSINOPHILIA [None]
